FAERS Safety Report 24402220 (Version 2)
Quarter: 2025Q2

REPORT INFORMATION
  Report Type: Spontaneous
  Country: US (occurrence: US)
  Receive Date: 20241007
  Receipt Date: 20250407
  Transmission Date: 20250716
  Serious: Yes (Other)
  Sender: NOVO NORDISK
  Company Number: US-NOVOPROD-1292487

PATIENT
  Age: 61 Year
  Sex: Male

DRUGS (6)
  1. WEGOVY [Suspect]
     Active Substance: SEMAGLUTIDE
     Indication: Product used for unknown indication
     Route: 058
  2. ORGOVYX [Suspect]
     Active Substance: RELUGOLIX
     Indication: Prostate cancer
     Dosage: 120 MG, QD
     Route: 048
     Dates: start: 20240522
  3. ORGOVYX [Suspect]
     Active Substance: RELUGOLIX
     Dosage: 120 MG, QD
     Route: 048
     Dates: start: 20240522
  4. TRULICITY [Suspect]
     Active Substance: DULAGLUTIDE
     Indication: Product used for unknown indication
  5. ABIRATERONE ACETATE [Concomitant]
     Active Substance: ABIRATERONE ACETATE
     Indication: Prostate cancer
     Dates: start: 20240522
  6. PREDNISONE [Concomitant]
     Active Substance: PREDNISONE
     Indication: Prostate cancer
     Dates: start: 20240522

REACTIONS (13)
  - Rib fracture [Unknown]
  - Wrist surgery [Unknown]
  - Gait disturbance [Unknown]
  - Road traffic accident [Unknown]
  - Blood testosterone decreased [Unknown]
  - Mood swings [Unknown]
  - Hot flush [Recovering/Resolving]
  - Andropause [Not Recovered/Not Resolved]
  - Sacral pain [Unknown]
  - Pain [Unknown]
  - Depressed mood [Unknown]
  - Insomnia [Unknown]
  - Weight decreased [Unknown]
